FAERS Safety Report 9531428 (Version 1)
Quarter: 2013Q3

REPORT INFORMATION
  Report Type: Spontaneous
  Country: US (occurrence: None)
  Receive Date: 20130916
  Receipt Date: 20130916
  Transmission Date: 20140515
  Serious: Yes (Other)
  Sender: FDA-Public Use
  Company Number: None

PATIENT
  Age: 76 Year
  Sex: Female
  Weight: 56.7 kg

DRUGS (1)
  1. WARFARIN [Suspect]
     Indication: THROMBOSIS
     Route: 048

REACTIONS (2)
  - International normalised ratio increased [None]
  - Eye haemorrhage [None]
